FAERS Safety Report 14369533 (Version 11)
Quarter: 2018Q2

REPORT INFORMATION
  Report Type: Spontaneous
  Country: DE (occurrence: DE)
  Receive Date: 20180110
  Receipt Date: 20180413
  Transmission Date: 20180711
  Serious: Yes (Hospitalization)
  Sender: FDA-Public Use
  Company Number: DE-AMGEN-DEUSP2018002465

PATIENT
  Sex: Male

DRUGS (24)
  1. PEGFILGRASTIM [Suspect]
     Active Substance: PEGFILGRASTIM
     Dosage: UNK, D4 FOR 1 DAY
     Route: 058
     Dates: start: 20180224, end: 20180224
  2. VINCRISTINE [Suspect]
     Active Substance: VINCRISTINE
     Dosage: 3.26 MG, Q2WK (FOR 1 DAY)
     Route: 042
     Dates: start: 20180123, end: 20180123
  3. CYCLOPHOSPHAMIDE. [Suspect]
     Active Substance: CYCLOPHOSPHAMIDE
     Dosage: 1460 MG, Q2WK (FOR 1 DAY)
     Route: 042
     Dates: start: 20180123, end: 20180123
  4. VINCRISTINE [Suspect]
     Active Substance: VINCRISTINE
     Dosage: UNK UNK, Q2WK (FOR 1 DAY)
     Route: 042
     Dates: start: 20180222, end: 20180222
  5. BISOPROLOL [Concomitant]
     Active Substance: BISOPROLOL
     Indication: HYPERTENSION
     Dosage: 5 MG, QD
     Route: 048
  6. TORASEMIDE [Concomitant]
     Active Substance: TORSEMIDE
     Indication: PRODUCT USED FOR UNKNOWN INDICATION
     Dosage: 5 MG, UNK
     Route: 065
     Dates: start: 20171212
  7. RITUXIMAB. [Suspect]
     Active Substance: RITUXIMAB
     Indication: B-CELL LYMPHOMA
     Dosage: 760 MG, Q2WK (FOR 1 DAY)
     Route: 042
     Dates: start: 20171219, end: 20171219
  8. RITUXIMAB. [Suspect]
     Active Substance: RITUXIMAB
     Dosage: 760 MG, Q2WK, (FOR 1 DAY, CYCLE 4)
     Route: 042
     Dates: start: 20180122, end: 20180122
  9. CYCLOPHOSPHAMIDE. [Suspect]
     Active Substance: CYCLOPHOSPHAMIDE
     Indication: B-CELL LYMPHOMA
     Dosage: 1460 MG, Q2WK (FOR 1 DAY)
     Route: 042
     Dates: start: 20171220, end: 20171220
  10. CYCLOPHOSPHAMIDE. [Suspect]
     Active Substance: CYCLOPHOSPHAMIDE
     Dosage: UNK UNK, Q2WK (FOR 1 DAY)
     Route: 042
     Dates: start: 20180222, end: 20180222
  11. VINCRISTINE [Suspect]
     Active Substance: VINCRISTINE
     Indication: B-CELL LYMPHOMA
     Dosage: 3.39 MG, Q2WK (FOR 1 DAY)
     Route: 042
     Dates: start: 20171220, end: 20171220
  12. LERCANIDIPINE [Concomitant]
     Active Substance: LERCANIDIPINE
     Indication: CORONARY ARTERY DISEASE
     Dosage: 20 MG, QD
     Route: 048
  13. DOXORUBICINE [Suspect]
     Active Substance: DOXORUBICIN
     Indication: B-CELL LYMPHOMA
     Dosage: 98 MG, Q2WK (FOR 1 DAY)
     Route: 042
     Dates: start: 20171220, end: 20171220
  14. PREDNISONE. [Suspect]
     Active Substance: PREDNISONE
     Indication: B-CELL LYMPHOMA
     Dosage: 500 MG, Q2WK (4 DAY)
     Route: 048
     Dates: start: 20171221, end: 20171224
  15. AMIODARONE [Concomitant]
     Active Substance: AMIODARONE
     Indication: HYPERTENSION
     Dosage: 200 MG, QD
     Route: 048
  16. DOXORUBICINE [Suspect]
     Active Substance: DOXORUBICIN
     Dosage: UNK UNK, Q2WK (FOR 1 DAY)
     Route: 042
     Dates: start: 20180222, end: 20180222
  17. PREDNISONE. [Suspect]
     Active Substance: PREDNISONE
     Dosage: 500 MG, Q2WK (4 DAY)
     Route: 048
     Dates: start: 20180123, end: 20180127
  18. PEGFILGRASTIM [Suspect]
     Active Substance: PEGFILGRASTIM
     Indication: B-CELL LYMPHOMA
     Dosage: UNK, D4 FOR 1 DAY
     Route: 058
     Dates: start: 20171223, end: 20171223
  19. PREDNISONE. [Suspect]
     Active Substance: PREDNISONE
     Dosage: UNK UNK, Q2WK (4 DAY)
     Route: 048
     Dates: start: 20180222, end: 20180228
  20. SIMVASTATIN. [Concomitant]
     Active Substance: SIMVASTATIN
     Indication: CORONARY ARTERY DISEASE
     Dosage: 20 MG, QD
     Route: 048
  21. CANDESARTAN. [Concomitant]
     Active Substance: CANDESARTAN
     Indication: HYPERTENSION
     Dosage: 32/25 MG, QD
     Route: 048
  22. PEGFILGRASTIM [Suspect]
     Active Substance: PEGFILGRASTIM
     Dosage: UNK, D4 FOR 1 DAY
     Route: 058
     Dates: start: 20180126, end: 20180126
  23. RITUXIMAB. [Suspect]
     Active Substance: RITUXIMAB
     Dosage: 760 MG, Q2WK
     Route: 042
     Dates: start: 20180221, end: 20180221
  24. DOXORUBICINE [Suspect]
     Active Substance: DOXORUBICIN
     Dosage: 100 MG, Q2WK (FOR 1 DAY)
     Route: 042
     Dates: start: 20180123, end: 20180123

REACTIONS (1)
  - Diarrhoea [Recovered/Resolved]

NARRATIVE: CASE EVENT DATE: 20171226
